FAERS Safety Report 6192001-0 (Version None)
Quarter: 2009Q2

REPORT INFORMATION
  Report Type: 
  Country: None (occurrence: None)
  Receive Date: 20090515
  Receipt Date: 20090505
  Transmission Date: 20091009
  Serious: Yes (Hospitalization)
  Sender: FDA-Public Use
  Company Number: B0572732A

PATIENT
  Sex: Female

DRUGS (5)
  1. SALBUMOL [Suspect]
     Route: 054
     Dates: start: 20090306, end: 20090308
  2. NICARDIPINE HCL [Suspect]
     Route: 042
     Dates: start: 20090306, end: 20090309
  3. SPASFON [Concomitant]
     Dates: start: 20090306, end: 20090309
  4. DAFLON [Concomitant]
     Route: 065
     Dates: start: 20090307, end: 20090309
  5. TITANOREINE [Concomitant]
     Route: 065
     Dates: start: 20090308

REACTIONS (14)
  - ACUTE PULMONARY OEDEMA [None]
  - CHEST PAIN [None]
  - DRUG EXPOSURE DURING PREGNANCY [None]
  - DYSPNOEA [None]
  - ECLAMPSIA [None]
  - FIBRIN D DIMER INCREASED [None]
  - HELLP SYNDROME [None]
  - HEPATOCELLULAR INJURY [None]
  - HYPERTENSION [None]
  - HYPOVENTILATION [None]
  - INTERSTITIAL LUNG DISEASE [None]
  - PLATELET COUNT DECREASED [None]
  - PLEURAL EFFUSION [None]
  - RALES [None]
